FAERS Safety Report 5965258-6 (Version None)
Quarter: 2008Q4

REPORT INFORMATION
  Report Type: 
  Country: None (occurrence: None)
  Receive Date: 20081121
  Receipt Date: 20081028
  Transmission Date: 20090506
  Serious: Yes (Death, Hospitalization)
  Sender: FDA-Public Use
  Company Number: 2008S1019475

PATIENT
  Age: 48 Year
  Sex: Male

DRUGS (1)
  1. CLOZAPINE [Suspect]
     Indication: SCHIZOPHRENIA
     Dosage: 400 MG;DAILY

REACTIONS (9)
  - ASCITES [None]
  - BLOOD CREATININE DECREASED [None]
  - GASTROINTESTINAL HYPOMOTILITY [None]
  - HYPOTENSION [None]
  - INTESTINAL INFARCTION [None]
  - MEGACOLON [None]
  - METABOLIC ACIDOSIS [None]
  - PALPITATIONS [None]
  - RESPIRATORY DISTRESS [None]
